FAERS Safety Report 12518836 (Version 1)
Quarter: 2016Q2

REPORT INFORMATION
  Report Type: Spontaneous
  Country: JP (occurrence: JP)
  Receive Date: 20160630
  Receipt Date: 20160630
  Transmission Date: 20160815
  Serious: Yes (Other)
  Sender: FDA-Public Use
  Company Number: PHHY2016JP089032

PATIENT
  Age: 50 Year
  Sex: Female

DRUGS (5)
  1. 5 FU [Suspect]
     Active Substance: FLUOROURACIL
     Indication: RECTAL CANCER
     Dosage: 400 MG/M2, UNK
     Route: 040
  2. CALCIUM LEVOFOLINATE [Suspect]
     Active Substance: LEVOLEUCOVORIN CALCIUM
     Indication: RECTAL CANCER
     Dosage: 200 MG/M2/2 HRS
     Route: 065
  3. BEVACIZUMAB [Suspect]
     Active Substance: BEVACIZUMAB
     Indication: RECTAL CANCER
     Dosage: 5 MG/KG/30 MIN
     Route: 065
  4. OXALIPLATIN. [Suspect]
     Active Substance: OXALIPLATIN
     Indication: RECTAL CANCER
     Dosage: 85 MG/M2/2 HRS
     Route: 065
  5. 5 FU [Suspect]
     Active Substance: FLUOROURACIL
     Dosage: 2400 MG/M2/46 HRS.
     Route: 065

REACTIONS (1)
  - Female genital tract fistula [Unknown]
